FAERS Safety Report 4971095-1 (Version None)
Quarter: 2006Q1

REPORT INFORMATION
  Report Type: 
  Country: None (occurrence: None)
  Receive Date: 20060228
  Receipt Date: 20050321
  Transmission Date: 20060701
  Serious: No
  Sender: FDA-Public Use
  Company Number: 05P-163-0294759-00

PATIENT
  Sex: Female

DRUGS (4)
  1. MIVACRON [Suspect]
     Indication: HYPOTONIA
     Dosage: 4 MG, ONCE, INTRAVENOUS
     Route: 042
  2. CISATRACURIUM BESILATE [Concomitant]
  3. FENTANYL [Concomitant]
  4. MIDAZOLAM HYDROCHLORIDE [Concomitant]

REACTIONS (1)
  - NEUROMUSCULAR BLOCK PROLONGED [None]
